FAERS Safety Report 13727123 (Version 1)
Quarter: 2017Q3

REPORT INFORMATION
  Report Type: Other
  Country: None (occurrence: US)
  Receive Date: 20170706
  Receipt Date: 20170706
  Transmission Date: 20171127
  Serious: Yes (Other)
  Sender: FDA-Public Use
  Company Number: US-GUTHY-RENKER LLC-2023038

PATIENT
  Age: 16 Year
  Sex: Male

DRUGS (3)
  1. PROACTIV PLUS PORE TARGETING TREATMENT [Suspect]
     Active Substance: BENZOYL PEROXIDE
     Route: 061
     Dates: start: 20160320, end: 20160323
  2. PROACTIV PLUS COMPLEXION PERFECTING HYDRATOR [Suspect]
     Active Substance: SALICYLIC ACID
     Route: 061
     Dates: start: 20160320, end: 20160323
  3. PROACTIVPLUS SKIN SMOOTHING EXFOLIATOR [Suspect]
     Active Substance: BENZOYL PEROXIDE
     Indication: ACNE
     Route: 061
     Dates: start: 20160320, end: 20160323

REACTIONS (5)
  - Skin tightness [None]
  - Erythema [Recovered/Resolved]
  - Speech disorder [None]
  - Application site pain [None]
  - Application site vesicles [None]

NARRATIVE: CASE EVENT DATE: 20160323
